FAERS Safety Report 9538478 (Version 1)
Quarter: 2013Q2

REPORT INFORMATION
  Report Type: Spontaneous
  Country: US (occurrence: None)
  Receive Date: 20130507
  Receipt Date: 20130507
  Transmission Date: 20140414
  Serious: No
  Sender: FDA-Public Use
  Company Number: PHEH2013US002344

PATIENT
  Age: 55 Year
  Sex: Male
  Weight: 103 kg

DRUGS (8)
  1. AFINITOR (RAD) [Suspect]
     Route: 048
  2. CYMBALTA [Concomitant]
  3. ONGLYZA [Concomitant]
  4. NEURONTIN [Concomitant]
  5. SYNTHROID [Concomitant]
  6. CARAFATE [Concomitant]
  7. CRESTOR [Concomitant]
  8. PERCOCET [Concomitant]

REACTIONS (3)
  - Stomatitis [None]
  - Fatigue [None]
  - Vomiting [None]
